FAERS Safety Report 23644376 (Version 3)
Quarter: 2024Q1

REPORT INFORMATION
  Report Type: Spontaneous
  Country: RO (occurrence: RO)
  Receive Date: 20240318
  Receipt Date: 20240329
  Transmission Date: 20240410
  Serious: Yes (Other)
  Sender: FDA-Public Use
  Company Number: RO-JNJFOC-20240320133

PATIENT
  Age: 66 Year
  Sex: Male

DRUGS (4)
  1. ERLEADA [Suspect]
     Active Substance: APALUTAMIDE
     Indication: Neoplasm malignant
     Dosage: 4 TABLETS DAILY,  IN THE MORNING, ON AN EMPTY STOMACH.
     Route: 048
     Dates: start: 202305
  2. GOSERELIN [Suspect]
     Active Substance: GOSERELIN
     Indication: Product used for unknown indication
     Route: 065
  3. CLOBETASOL [Concomitant]
     Active Substance: CLOBETASOL
  4. BETAMETHASONE VALERATE\FUSIDIC ACID [Concomitant]
     Active Substance: BETAMETHASONE VALERATE\FUSIDIC ACID

REACTIONS (7)
  - Radiotherapy [Unknown]
  - Skin mass [Unknown]
  - Skin operation [Unknown]
  - Swelling [Unknown]
  - Dry skin [Unknown]
  - Dermatitis atopic [Recovered/Resolved]
  - Measles [Unknown]

NARRATIVE: CASE EVENT DATE: 20230801
